FAERS Safety Report 22084210 (Version 1)
Quarter: 2023Q1

REPORT INFORMATION
  Report Type: Spontaneous
  Country: US (occurrence: None)
  Receive Date: 20230310
  Receipt Date: 20230310
  Transmission Date: 20230418
  Serious: Yes (Hospitalization, Other)
  Sender: FDA-Public Use
  Company Number: US-ROCHE-3277085

PATIENT
  Age: 48 Year
  Sex: Female

DRUGS (10)
  1. HERCEPTIN [Suspect]
     Active Substance: TRASTUZUMAB
     Indication: Product used for unknown indication
     Route: 065
  2. CAPECITABINE [Suspect]
     Active Substance: CAPECITABINE
     Indication: Product used for unknown indication
     Route: 065
  3. TUKYSA [Suspect]
     Active Substance: TUCATINIB
     Indication: Breast cancer female
     Dosage: SAME TIME EVERYDAY TWELVE HOURS APART, WITH OR WITHOUT FOOD.
     Route: 065
  4. ASPIRIN [Concomitant]
     Active Substance: ASPIRIN
  5. METHADONE [Concomitant]
     Active Substance: METHADONE HYDROCHLORIDE
  6. ZOFRAN [Concomitant]
     Active Substance: ONDANSETRON HYDROCHLORIDE
  7. OXYCODONE [Concomitant]
     Active Substance: OXYCODONE
  8. METHOCARBAMOL [Concomitant]
     Active Substance: METHOCARBAMOL
  9. GABAPENTIN [Concomitant]
     Active Substance: GABAPENTIN
  10. PEPCID [Concomitant]
     Active Substance: FAMOTIDINE

REACTIONS (7)
  - White blood cell count decreased [Unknown]
  - Constipation [Unknown]
  - Pain [Unknown]
  - Malaise [Unknown]
  - Emotional disorder [Unknown]
  - Pneumonia [Unknown]
  - Vomiting [Unknown]

NARRATIVE: CASE EVENT DATE: 20230224
